FAERS Safety Report 4710254-X (Version None)
Quarter: 2005Q3

REPORT INFORMATION
  Report Type: 
  Country: None (occurrence: None)
  Receive Date: 20050711
  Receipt Date: 20050627
  Transmission Date: 20060218
  Serious: Yes (Hospitalization)
  Sender: FDA-Public Use
  Company Number: US-JNJFOC-20050607165

PATIENT
  Age: 12 Year
  Sex: Male
  Weight: 32.4 kg

DRUGS (6)
  1. INFLIXIMAB [Suspect]
     Route: 065
  2. CORTICOSTEROIDS [Suspect]
     Indication: DRUG USE FOR UNKNOWN INDICATION
  3. THYMOGLOBULIN [Suspect]
     Indication: DRUG USE FOR UNKNOWN INDICATION
  4. TACROLIMUS [Suspect]
     Indication: DRUG USE FOR UNKNOWN INDICATION
  5. MYCOPHENOLATE [Suspect]
     Indication: DRUG USE FOR UNKNOWN INDICATION
  6. ETANERCEPT [Suspect]
     Indication: DRUG USE FOR UNKNOWN INDICATION

REACTIONS (2)
  - CYTOMEGALOVIRUS INFECTION [None]
  - RESPIRATORY FAILURE [None]
